FAERS Safety Report 4915863-0 (Version None)
Quarter: 2006Q1

REPORT INFORMATION
  Report Type: 
  Country: None (occurrence: None)
  Receive Date: 20060214
  Receipt Date: 20060203
  Transmission Date: 20060701
  Serious: Yes (Other)
  Sender: FDA-Public Use
  Company Number: 2006018129

PATIENT
  Age: 12 Year
  Sex: Female
  Weight: 49.8957 kg

DRUGS (5)
  1. DEPO-PROVERA [Suspect]
     Indication: MENSTRUAL DISCOMFORT
     Dosage: (1ST INJECTION)
     Dates: start: 20051202, end: 20051202
  2. ACETAMINOPHEN [Concomitant]
  3. MOTRIN [Concomitant]
  4. ORTHO EVRA [Concomitant]
  5. CONTRACEPTIVE, UNSPECIFIED [Concomitant]

REACTIONS (16)
  - ABDOMINAL PAIN UPPER [None]
  - ANXIETY [None]
  - BACK PAIN [None]
  - BLOOD URINE PRESENT [None]
  - CHEST PAIN [None]
  - CYANOPSIA [None]
  - DEPRESSION [None]
  - DYSPNOEA [None]
  - EYE PAIN [None]
  - INFLUENZA [None]
  - MALAISE [None]
  - PHOTOSENSITIVITY REACTION [None]
  - POLLAKIURIA [None]
  - URINARY TRACT INFECTION [None]
  - VAGINAL DISORDER [None]
  - VISION BLURRED [None]
